FAERS Safety Report 13845895 (Version 1)
Quarter: 2017Q3

REPORT INFORMATION
  Report Type: Spontaneous
  Country: US (occurrence: US)
  Receive Date: 20170808
  Receipt Date: 20170808
  Transmission Date: 20171127
  Serious: Yes (Other)
  Sender: FDA-Public Use
  Company Number: US-ROCHE-712578

PATIENT
  Age: 57 Year
  Sex: Female
  Weight: 58.1 kg

DRUGS (2)
  1. BONIVA [Suspect]
     Active Substance: IBANDRONATE SODIUM
     Indication: OSTEOPOROSIS
     Route: 048
  2. CALCIUM SUPPLEMENT [Concomitant]
     Active Substance: CALCIUM
     Dosage: FREQUENCY : DAILY
     Route: 065

REACTIONS (2)
  - Tooth fracture [Unknown]
  - Tooth disorder [Unknown]

NARRATIVE: CASE EVENT DATE: 2008
